FAERS Safety Report 8614216-1 (Version None)
Quarter: 2012Q3

REPORT INFORMATION
  Report Type: 
  Country: None (occurrence: None)
  Receive Date: 20120813
  Receipt Date: 20120813
  Transmission Date: 20120928
  Serious: No
  Sender: FDA-Public Use
  Company Number: None

PATIENT
  Age: 72 Year
  Sex: Male
  Weight: 97.5 kg

DRUGS (1)
  1. PIOGLITAZONE HCL [Suspect]
     Indication: DIABETES MELLITUS
     Dosage: 30 MG EVERY DAY PO
     Route: 048
     Dates: start: 20111211, end: 20120515

REACTIONS (4)
  - OEDEMA PERIPHERAL [None]
  - DYSPNOEA [None]
  - EXERCISE TOLERANCE DECREASED [None]
  - CARDIOMEGALY [None]
